FAERS Safety Report 4730776-5 (Version None)
Quarter: 2005Q3

REPORT INFORMATION
  Report Type: 
  Country: None (occurrence: None)
  Receive Date: 20050725
  Receipt Date: 20050518
  Transmission Date: 20060218
  Serious: No
  Sender: FDA-Public Use
  Company Number: USA050598011

PATIENT
  Age: 51 Year
  Sex: Male

DRUGS (4)
  1. STRATTERA [Suspect]
     Indication: ATTENTION DEFICIT/HYPERACTIVITY DISORDER
     Dosage: 40 MG DAY
     Dates: end: 20050512
  2. PROVIGIL [Concomitant]
  3. VITAMINS [Concomitant]
  4. MINERALS NOS [Concomitant]

REACTIONS (7)
  - BLOOD PRESSURE DECREASED [None]
  - BLOOD PRESSURE INCREASED [None]
  - CHEST PAIN [None]
  - DRUG INEFFECTIVE [None]
  - ELECTROCARDIOGRAM ABNORMAL [None]
  - HEART RATE INCREASED [None]
  - UPPER RESPIRATORY TRACT INFECTION [None]
